FAERS Safety Report 14299190 (Version 7)
Quarter: 2018Q3

REPORT INFORMATION
  Report Type: Spontaneous
  Country: FR (occurrence: FR)
  Receive Date: 20171218
  Receipt Date: 20180718
  Transmission Date: 20181010
  Serious: Yes (Hospitalization, Other)
  Sender: FDA-Public Use
  Company Number: FR-ABBVIE-17S-056-2195995-00

PATIENT
  Age: 70 Year
  Sex: Male

DRUGS (27)
  1. VITAMIN B1 AND B6 [Concomitant]
     Active Substance: PYRIDOXINE HYDROCHLORIDE\THIAMINE HYDROCHLORIDE
     Indication: PRODUCT USED FOR UNKNOWN INDICATION
     Dosage: 2 DF QD
     Route: 065
  2. VITAMIN B1 AND B6 [Concomitant]
     Active Substance: PYRIDOXINE HYDROCHLORIDE\THIAMINE HYDROCHLORIDE
     Dosage: 2 UNK, UNK
  3. ALLOPURINOL. [Suspect]
     Active Substance: ALLOPURINOL
     Dosage: 20 MG, QD
     Route: 048
     Dates: end: 20171024
  4. PYRIDOXINE [Concomitant]
     Active Substance: PYRIDOXINE
     Indication: PRODUCT USED FOR UNKNOWN INDICATION
     Dosage: 2 DF, QD
     Route: 065
  5. LECTIL [Suspect]
     Active Substance: BETAHISTINE HYDROCHLORIDE
     Indication: PRODUCT USED FOR UNKNOWN INDICATION
     Dosage: 2 DF, QD
     Route: 048
     Dates: end: 20171023
  6. TRIATEC (RAMIPRIL) [Suspect]
     Active Substance: RAMIPRIL
     Dosage: 1.25 MG, QD
     Route: 048
     Dates: end: 20171024
  7. LIPANTHYL [Suspect]
     Active Substance: FENOFIBRATE
     Dosage: 145 MG, QD
     Route: 065
     Dates: end: 20171024
  8. XARELTO [Suspect]
     Active Substance: RIVAROXABAN
     Indication: ATRIAL FIBRILLATION
     Dosage: REGULAR TREATMENT
     Route: 048
     Dates: end: 20171024
  9. AMOXICILLIN SODIUM [Concomitant]
     Active Substance: AMOXICILLIN SODIUM
     Indication: INFLUENZA LIKE ILLNESS
     Dosage: 1 DF, BID
  10. ATENOLOL. [Suspect]
     Active Substance: ATENOLOL
     Dosage: 50 MG, UNK
     Route: 048
  11. DOLIPRANE [Suspect]
     Active Substance: ACETAMINOPHEN
     Dosage: 1 G, TID
     Route: 048
     Dates: end: 20171023
  12. ATENOLOL. [Suspect]
     Active Substance: ATENOLOL
     Indication: PRODUCT USED FOR UNKNOWN INDICATION
     Dosage: 1 DF, QD
     Route: 048
  13. AOTAL [Suspect]
     Active Substance: ACAMPROSATE CALCIUM
     Dosage: 666 MG, TID
     Route: 048
     Dates: start: 20171002, end: 20171023
  14. LECTIL [Suspect]
     Active Substance: BETAHISTINE HYDROCHLORIDE
     Dosage: 24 MG, BID
     Route: 048
     Dates: end: 20171023
  15. IXPRIM [Suspect]
     Active Substance: ACETAMINOPHEN\TRAMADOL HYDROCHLORIDE
     Indication: PRODUCT USED FOR UNKNOWN INDICATION
     Dosage: 37.5 MG/325 MG
     Route: 048
     Dates: end: 20171023
  16. TRANXENE [Suspect]
     Active Substance: CLORAZEPATE DIPOTASSIUM
     Dosage: 20 MG, BID
     Route: 048
     Dates: start: 20171002, end: 20171024
  17. ATENOLOL. [Suspect]
     Active Substance: ATENOLOL
     Dosage: 1 DF, QD
     Route: 065
  18. ALLOPURINOL. [Suspect]
     Active Substance: ALLOPURINOL
     Indication: PRODUCT USED FOR UNKNOWN INDICATION
     Dosage: 1 DF, QD
     Route: 048
     Dates: end: 20171024
  19. TANGANIL [Suspect]
     Active Substance: ACETYLLEUCINE
     Indication: PRODUCT USED FOR UNKNOWN INDICATION
     Dosage: 2 DF, QD
     Route: 048
     Dates: end: 20171023
  20. ASPIRIN. [Concomitant]
     Active Substance: ASPIRIN
     Indication: PRODUCT USED FOR UNKNOWN INDICATION
     Dosage: 100 MG, QD
  21. AMOX+AC CLAV SAN [Concomitant]
     Indication: INFLUENZA LIKE ILLNESS
     Dosage: 1 DF, BID
     Dates: start: 20171002
  22. LIPANTHYL [Suspect]
     Active Substance: FENOFIBRATE
     Indication: PRODUCT USED FOR UNKNOWN INDICATION
     Dosage: 1 DF, QD
     Route: 048
     Dates: end: 20171024
  23. AOTAL [Suspect]
     Active Substance: ACAMPROSATE CALCIUM
     Indication: PRODUCT USED FOR UNKNOWN INDICATION
     Dosage: 6 DF, QD
     Route: 048
     Dates: start: 20171002, end: 20171023
  24. TRIATEC (RAMIPRIL) [Suspect]
     Active Substance: RAMIPRIL
     Indication: PRODUCT USED FOR UNKNOWN INDICATION
     Dosage: 1 DF, QD
     Route: 048
     Dates: end: 20171024
  25. XARELTO [Suspect]
     Active Substance: RIVAROXABAN
     Dosage: 20 MG, QD
     Route: 048
     Dates: end: 20171024
  26. DOLIPRANE [Suspect]
     Active Substance: ACETAMINOPHEN
     Indication: PRODUCT USED FOR UNKNOWN INDICATION
     Dosage: 3 DF, QD
     Route: 048
     Dates: end: 20171023
  27. TRANXENE [Suspect]
     Active Substance: CLORAZEPATE DIPOTASSIUM
     Indication: PRODUCT USED FOR UNKNOWN INDICATION
     Dosage: 6 DF, QD
     Route: 048
     Dates: start: 20171001, end: 20171024

REACTIONS (7)
  - Serum ferritin increased [None]
  - Anticoagulation drug level above therapeutic [Recovered/Resolved]
  - Hyperthermia [None]
  - Blood bilirubin increased [None]
  - Inappropriate schedule of drug administration [Unknown]
  - Blood alkaline phosphatase increased [None]
  - Hepatitis acute [Recovering/Resolving]

NARRATIVE: CASE EVENT DATE: 20171024
